FAERS Safety Report 5720982-5 (Version None)
Quarter: 2008Q2

REPORT INFORMATION
  Report Type: 
  Country: None (occurrence: None)
  Receive Date: 20080429
  Receipt Date: 20080423
  Transmission Date: 20081010
  Serious: Yes (Life-Threatening, Hospitalization)
  Sender: FDA-Public Use
  Company Number: US-ASTRAZENECA-2008UW07781

PATIENT
  Age: 16 Year
  Sex: Male

DRUGS (5)
  1. SYMBICORT [Suspect]
     Dosage: 160/4.5 TWO PUFFS BID
     Route: 055
  2. ALBUTEROL [Concomitant]
  3. ALLEGRA [Concomitant]
  4. PREVACID [Concomitant]
  5. SINGULAIR [Concomitant]

REACTIONS (4)
  - PALPITATIONS [None]
  - VENTRICULAR DYSFUNCTION [None]
  - VENTRICULAR HYPOKINESIA [None]
  - VENTRICULAR TACHYCARDIA [None]
